FAERS Safety Report 13068025 (Version 1)
Quarter: 2016Q4

REPORT INFORMATION
  Report Type: Spontaneous
  Country: US (occurrence: US)
  Receive Date: 20161228
  Receipt Date: 20161228
  Transmission Date: 20170207
  Serious: Yes (Other)
  Sender: FDA-Public Use
  Company Number: US-GLAXOSMITHKLINE-US2016190269

PATIENT
  Age: 80 Year
  Sex: Female

DRUGS (1)
  1. PERDIEM [Suspect]
     Active Substance: SENNOSIDES
     Indication: CONSTIPATION
     Dosage: UNK, USING IT FOR YEARS

REACTIONS (2)
  - Parkinson^s disease [Not Recovered/Not Resolved]
  - Incorrect drug administration duration [Unknown]
